FAERS Safety Report 25979618 (Version 1)
Quarter: 2025Q4

REPORT INFORMATION
  Report Type: Spontaneous
  Country: US (occurrence: US)
  Receive Date: 20251030
  Receipt Date: 20251030
  Transmission Date: 20260118
  Serious: No
  Sender: LABORATOIRES SERB
  Company Number: US-SERB S.A.S.-2187544

PATIENT
  Age: 23 Year
  Sex: Female

DRUGS (1)
  1. CROFAB [Suspect]
     Active Substance: AGKISTRODON PISCIVORUS IMMUNE FAB ANTIVENIN (OVINE)\CROTALUS ADAMANTEUS IMMUNE FAB ANTIVENIN (OVINE)
     Indication: Snake bite

REACTIONS (3)
  - Urticaria [Not Recovered/Not Resolved]
  - Inappropriate schedule of product administration [Unknown]
  - Off label use [Unknown]

NARRATIVE: CASE EVENT DATE: 20250826
